FAERS Safety Report 6269890-4 (Version None)
Quarter: 2009Q3

REPORT INFORMATION
  Report Type: 
  Country: None (occurrence: None)
  Receive Date: 20090714
  Receipt Date: 20090708
  Transmission Date: 20100115
  Serious: Yes (Hospitalization, Other)
  Sender: FDA-Public Use
  Company Number: GXKR2009DE07773

PATIENT
  Age: 66 Year
  Sex: Male
  Weight: 80 kg

DRUGS (4)
  1. FUROSEMIDE (NGX) (FUROSEMIDE) SOLUTION FOR INFUSION [Suspect]
     Dosage: INTRAVENOUS
     Route: 042
     Dates: start: 20070318, end: 20070323
  2. AQUAPHOR TABLET (XIPAMIDE) 40MG [Suspect]
     Dosage: SINGLE DOSE DIFFERENT (200 MG CUMULATIVE DOSE), ORAL
     Route: 048
     Dates: start: 20070318, end: 20070323
  3. TRAMAL (TRAMADOL HYDROCHLORIDE) AMPOULE [Suspect]
     Dosage: INTRAVENOUS
     Route: 042
     Dates: start: 20070318, end: 20070326
  4. ZIENAM (CILASTATIN SODIUM, IMPENEN) AMPOULE, 500 [Suspect]
     Dosage: INTRAVENOUS
     Route: 042
     Dates: start: 20070319, end: 20070326

REACTIONS (5)
  - AORTIC VALVE DISEASE [None]
  - CARDIAC FAILURE [None]
  - ENDOCARDITIS [None]
  - HEPATITIS ACUTE [None]
  - SEPSIS [None]
